FAERS Safety Report 15075443 (Version 1)
Quarter: 2018Q2

REPORT INFORMATION
  Report Type: Report from Study
  Country: US (occurrence: US)
  Receive Date: 20180627
  Receipt Date: 20180627
  Transmission Date: 20180711
  Serious: No
  Sender: FDA-Public Use
  Company Number: US-SAOL THERAPEUTICS-2018SAO00647

PATIENT
  Age: 60 Year
  Sex: Male

DRUGS (18)
  1. COMPOUNDED BACLOFEN [Suspect]
     Active Substance: BACLOFEN
     Dosage: 146.05 ?G, \DAY - MAX
     Route: 037
     Dates: start: 20180105, end: 20180215
  2. BUPIVACAINE. [Suspect]
     Active Substance: BUPIVACAINE
     Dosage: 7.497 MG, \DAY
     Route: 037
     Dates: start: 20180105, end: 20180215
  3. COMPOUNDED BACLOFEN [Suspect]
     Active Substance: BACLOFEN
     Dosage: 107.94 ?G, \DAY
     Route: 037
     Dates: end: 20180105
  4. COMPOUNDED BACLOFEN [Suspect]
     Active Substance: BACLOFEN
     Dosage: 178.65 ?G, \DAY - MAX
     Route: 037
     Dates: end: 20180105
  5. COMPOUNDED BACLOFEN [Suspect]
     Active Substance: BACLOFEN
     Dosage: 74.97 ?G, \DAY
     Route: 037
     Dates: start: 20180105, end: 20180215
  6. BUPIVACAINE. [Suspect]
     Active Substance: BUPIVACAINE
     Dosage: 17.865 MG, \DAY - MAX
     Route: 037
     Dates: end: 20180105
  7. COMPOUNDED BACLOFEN [Suspect]
     Active Substance: BACLOFEN
     Dosage: 97.56 ?G, \DAY
     Route: 037
     Dates: start: 20180215
  8. BUPIVACAINE. [Suspect]
     Active Substance: BUPIVACAINE
     Dosage: 9.756 MG, \DAY
     Route: 037
     Dates: start: 20180215
  9. HYDROMORPHONE [Suspect]
     Active Substance: HYDROMORPHONE
     Dosage: 0.7196 MG, \DAY
     Route: 037
     Dates: end: 20180105
  10. HYDROMORPHONE [Suspect]
     Active Substance: HYDROMORPHONE
     Dosage: 1.191 MG, \DAY - MAX
     Route: 037
     Dates: end: 20180105
  11. HYDROMORPHONE [Suspect]
     Active Substance: HYDROMORPHONE
     Dosage: 0.9737 MG, \DAY - MAX
     Route: 037
     Dates: start: 20180105, end: 20180215
  12. HYDROMORPHONE [Suspect]
     Active Substance: HYDROMORPHONE
     Dosage: 1.2758 MG, \DAY - MAX
     Route: 037
     Dates: start: 20180215
  13. BUPIVACAINE. [Suspect]
     Active Substance: BUPIVACAINE
     Dosage: 10.794 MG, \DAY
     Route: 037
     Dates: end: 20180105
  14. BUPIVACAINE. [Suspect]
     Active Substance: BUPIVACAINE
     Dosage: 19.138 MG, \DAY - MAX
     Route: 037
     Dates: start: 20180215
  15. HYDROMORPHONE [Suspect]
     Active Substance: HYDROMORPHONE
     Dosage: 0.4998 MG, \DAY
     Route: 037
     Dates: start: 20180105, end: 20180215
  16. BUPIVACAINE. [Suspect]
     Active Substance: BUPIVACAINE
     Dosage: 14.605 MG, \DAY - MAX
     Route: 037
     Dates: start: 20180105, end: 20180215
  17. COMPOUNDED BACLOFEN [Suspect]
     Active Substance: BACLOFEN
     Dosage: 191.38 ?G, \DAY - MAX
     Route: 037
     Dates: start: 20180215
  18. HYDROMORPHONE [Suspect]
     Active Substance: HYDROMORPHONE
     Dosage: 0.6504 MG, \DAY
     Route: 037
     Dates: start: 20180215

REACTIONS (3)
  - Pain [Recovering/Resolving]
  - Overdose [Recovered/Resolved]
  - Implant site pain [Recovered/Resolved]

NARRATIVE: CASE EVENT DATE: 20180105
